FAERS Safety Report 5485711-1 (Version None)
Quarter: 2007Q4

REPORT INFORMATION
  Report Type: 
  Country: None (occurrence: None)
  Receive Date: 20071015
  Receipt Date: 20071009
  Transmission Date: 20080405
  Serious: Yes (Hospitalization, Disabling)
  Sender: FDA-Public Use
  Company Number: US-MERCK-0710USA02390

PATIENT
  Sex: Female

DRUGS (1)
  1. COSOPT [Suspect]
     Route: 047

REACTIONS (1)
  - APLASTIC ANAEMIA [None]
